FAERS Safety Report 16098215 (Version 2)
Quarter: 2019Q2

REPORT INFORMATION
  Report Type: Report from Study
  Country: None (occurrence: US)
  Receive Date: 20190321
  Receipt Date: 20190627
  Transmission Date: 20190711
  Serious: Yes (Hospitalization)
  Sender: FDA-Public Use
  Company Number: US-ABBVIE-19K-163-2658162-00

PATIENT
  Age: 67 Year
  Sex: Male
  Weight: 74 kg

DRUGS (9)
  1. METOPROLOL. [Concomitant]
     Active Substance: METOPROLOL
     Indication: HYPERTENSION
  2. HUMIRA [Suspect]
     Active Substance: ADALIMUMAB
     Indication: PSORIATIC ARTHROPATHY
     Route: 058
     Dates: start: 2018, end: 201901
  3. GEMFIBROZIL. [Concomitant]
     Active Substance: GEMFIBROZIL
     Indication: BLOOD TRIGLYCERIDES INCREASED
  4. HUMIRA [Suspect]
     Active Substance: ADALIMUMAB
     Route: 058
  5. COENZYME Q10 [Concomitant]
     Active Substance: UBIDECARENONE
     Indication: VITAMIN SUPPLEMENTATION
  6. HUMIRA [Suspect]
     Active Substance: ADALIMUMAB
     Route: 058
     Dates: start: 20190307
  7. CINSULIN [Concomitant]
     Indication: VITAMIN SUPPLEMENTATION
  8. TURMERIC [Concomitant]
     Active Substance: HERBALS\TURMERIC
     Indication: VITAMIN SUPPLEMENTATION
  9. ATORVASTATIN [Concomitant]
     Active Substance: ATORVASTATIN
     Indication: BLOOD CHOLESTEROL INCREASED

REACTIONS (10)
  - Wound haemorrhage [Unknown]
  - Bleeding time prolonged [Recovered/Resolved]
  - Blood triglycerides increased [Unknown]
  - Injection site pain [Not Recovered/Not Resolved]
  - Blood cholesterol increased [Unknown]
  - Myocardial infarction [Recovered/Resolved]
  - Skin laceration [Recovered/Resolved]
  - Upper respiratory tract infection [Not Recovered/Not Resolved]
  - Coronary artery occlusion [Recovering/Resolving]
  - Psoriasis [Not Recovered/Not Resolved]

NARRATIVE: CASE EVENT DATE: 20190126
